FAERS Safety Report 19816012 (Version 1)
Quarter: 2021Q3

REPORT INFORMATION
  Report Type: Report from Study
  Country: US (occurrence: US)
  Receive Date: 20210910
  Receipt Date: 20210910
  Transmission Date: 20211014
  Serious: Yes (Death, Hospitalization)
  Sender: FDA-Public Use
  Company Number: US-OTSUKA-2021_008349AA

PATIENT
  Age: 77 Year
  Sex: Female
  Weight: 70.49 kg

DRUGS (1)
  1. CEDAZURIDINE AND DECITABINE [Suspect]
     Active Substance: CEDAZURIDINE\DECITABINE
     Indication: MYELODYSPLASTIC SYNDROME
     Dosage: 135 MG (35 MG DECITABINE AND 100 MG CEDAZURIDINE), QD ON DAYS 1?5 EVERY FIVE WEEKS
     Route: 048
     Dates: start: 20201221

REACTIONS (7)
  - Death [Fatal]
  - Blood count abnormal [Unknown]
  - Rash [Unknown]
  - Therapy interrupted [Unknown]
  - Pain [Unknown]
  - Post procedural haemorrhage [Recovered/Resolved]
  - Nausea [Unknown]

NARRATIVE: CASE EVENT DATE: 20210401
